FAERS Safety Report 24371445 (Version 1)
Quarter: 2024Q3

REPORT INFORMATION
  Report Type: Spontaneous
  Country: US (occurrence: None)
  Receive Date: 20240926
  Receipt Date: 20240926
  Transmission Date: 20241017
  Serious: Yes (Hospitalization)
  Sender: Public
  Company Number: None

PATIENT
  Age: 58 Year
  Sex: Female

DRUGS (1)
  1. ADBRY [Suspect]
     Active Substance: TRALOKINUMAB-LDRM
     Indication: Eczema
     Dosage: OTHER FREQUENCY : Q2WEEKS;?
     Route: 058

REACTIONS (3)
  - Rash [None]
  - Rash [None]
  - Anaphylactic reaction [None]

NARRATIVE: CASE EVENT DATE: 20240918
